FAERS Safety Report 13813037 (Version 5)
Quarter: 2017Q4

REPORT INFORMATION
  Report Type: Spontaneous
  Country: US (occurrence: US)
  Receive Date: 20170731
  Receipt Date: 20171116
  Transmission Date: 20180320
  Serious: No
  Sender: FDA-Public Use
  Company Number: US-AMGEN-USASP2017111930

PATIENT
  Age: 60 Year
  Sex: Female
  Weight: 67.57 kg

DRUGS (11)
  1. CALCIUM [Concomitant]
     Active Substance: CALCIUM
     Dosage: 600 MG, QD
  2. ENBREL [Suspect]
     Active Substance: ETANERCEPT
     Indication: RHEUMATOID ARTHRITIS
     Dosage: 50 MG, QWK
     Route: 058
     Dates: start: 2010, end: 2017
  3. XELJANZ [Suspect]
     Active Substance: TOFACITINIB CITRATE
     Indication: RHEUMATOID ARTHRITIS
     Dosage: 10 MG, BID
     Route: 048
     Dates: start: 20170605, end: 2017
  4. VITAMIN D [Concomitant]
     Active Substance: CHOLECALCIFEROL
     Dosage: 1000 UNIT, QD
  5. DICLOFENAC SODIUM. [Concomitant]
     Active Substance: DICLOFENAC SODIUM
     Dosage: 2-4 G,QID
  6. PRAVACHOL [Concomitant]
     Active Substance: PRAVASTATIN SODIUM
     Dosage: 30 MG(2 TABS), QD
     Route: 048
  7. XELJANZ [Suspect]
     Active Substance: TOFACITINIB CITRATE
     Dosage: 5 MG, BID
     Route: 048
     Dates: start: 2017, end: 20170925
  8. METHOTREXATE. [Concomitant]
     Active Substance: METHOTREXATE
     Dosage: 2.5 MG, (5 TABS) QWK
     Route: 048
  9. IBUPROFEN. [Concomitant]
     Active Substance: IBUPROFEN
     Dosage: 600 MG, TID (AS NEEDED)
     Route: 048
  10. NEXIUM [Concomitant]
     Active Substance: ESOMEPRAZOLE MAGNESIUM
     Dosage: 20 MG, BID
     Route: 048
  11. FOLIC ACID. [Concomitant]
     Active Substance: FOLIC ACID
     Dosage: 1 MG, QD
     Route: 048

REACTIONS (16)
  - Blood creatinine decreased [Unknown]
  - Headache [Unknown]
  - C-reactive protein increased [Unknown]
  - Osteoporosis [Unknown]
  - Dry eye [Unknown]
  - Blood urea nitrogen/creatinine ratio increased [Unknown]
  - Anti-cyclic citrullinated peptide antibody positive [Unknown]
  - Neck pain [Unknown]
  - Platelet count increased [Unknown]
  - Blood cholesterol increased [Unknown]
  - Blood triglycerides increased [Unknown]
  - Night sweats [Unknown]
  - Urinary tract infection [Recovered/Resolved]
  - Swelling [Unknown]
  - Low density lipoprotein increased [Unknown]
  - Gait disturbance [Unknown]

NARRATIVE: CASE EVENT DATE: 20170404
